FAERS Safety Report 6992075-0 (Version None)
Quarter: 2010Q3

REPORT INFORMATION
  Report Type: 
  Country: None (occurrence: None)
  Receive Date: 20100830
  Receipt Date: 20100617
  Transmission Date: 20110219
  Serious: No
  Sender: FDA-Public Use
  Company Number: 2010076684

PATIENT
  Age: 65 Year
  Sex: Female

DRUGS (1)
  1. TOVIAZ [Suspect]
     Indication: BLADDER DISORDER
     Dosage: 4 MG
     Dates: start: 20100615

REACTIONS (1)
  - HEADACHE [None]
